FAERS Safety Report 7232063-2 (Version None)
Quarter: 2011Q1

REPORT INFORMATION
  Report Type: 
  Country: None (occurrence: None)
  Receive Date: 20110118
  Receipt Date: 20110105
  Transmission Date: 20110831
  Serious: Yes (Hospitalization)
  Sender: FDA-Public Use
  Company Number: FR-MYLANLABS-2011S1000204

PATIENT
  Age: 72 Year
  Sex: Male

DRUGS (4)
  1. AVASTIN [Suspect]
     Indication: RECTAL CANCER
     Route: 042
     Dates: start: 20100617, end: 20100812
  2. OXALIPLATIN [Suspect]
     Indication: RECTAL CANCER
     Route: 042
     Dates: start: 20100617
  3. 5FU [Suspect]
     Indication: RECTAL CANCER
     Route: 042
     Dates: start: 20100617
  4. FOLINIC ACID [Suspect]
     Indication: RECTAL CANCER
     Route: 042
     Dates: start: 20100617

REACTIONS (4)
  - RECTAL HAEMORRHAGE [None]
  - TUMOUR HAEMORRHAGE [None]
  - HAEMORRHAGIC ANAEMIA [None]
  - HYPERTENSION [None]
